FAERS Safety Report 4959005-4 (Version None)
Quarter: 2006Q1

REPORT INFORMATION
  Report Type: 
  Country: None (occurrence: None)
  Receive Date: 20060328
  Receipt Date: 20060314
  Transmission Date: 20060701
  Serious: Yes (Hospitalization)
  Sender: FDA-Public Use
  Company Number: 2006BI003027

PATIENT
  Age: 65 Year
  Sex: Female
  Weight: 104.3273 kg

DRUGS (1)
  1. AVONEX [Suspect]
     Indication: MULTIPLE SCLEROSIS
     Dosage: 30 UG; QW; IM
     Route: 030
     Dates: start: 19970101

REACTIONS (3)
  - ANAEMIA [None]
  - RENAL IMPAIRMENT [None]
  - URINARY TRACT INFECTION [None]
